FAERS Safety Report 7158442-X (Version None)
Quarter: 2010Q4

REPORT INFORMATION
  Report Type: 
  Country: None (occurrence: None)
  Receive Date: 20101214
  Receipt Date: 20100802
  Transmission Date: 20110411
  Serious: No
  Sender: FDA-Public Use
  Company Number: US-ASTRAZENECA-2010SE24687

PATIENT
  Age: 74 Year
  Sex: Female
  Weight: 57.6 kg

DRUGS (2)
  1. CRESTOR [Suspect]
     Indication: BLOOD CHOLESTEROL INCREASED
     Route: 048
     Dates: start: 20100101
  2. LEVOTHYROXINE [Suspect]
     Route: 065

REACTIONS (1)
  - WEIGHT DECREASED [None]
